FAERS Safety Report 5000697-1 (Version None)
Quarter: 2006Q2

REPORT INFORMATION
  Report Type: 
  Country: None (occurrence: None)
  Receive Date: 20060512
  Receipt Date: 20060412
  Transmission Date: 20061013
  Serious: Yes (Other)
  Sender: FDA-Public Use
  Company Number: US-AVENTIS-200613555US

PATIENT
  Sex: Female
  Weight: 63 kg

DRUGS (18)
  1. KETEK [Suspect]
     Indication: UPPER RESPIRATORY TRACT INFECTION
     Dates: start: 20060411, end: 20060411
  2. ASPIRIN [Concomitant]
     Dosage: DOSE: UNKNOWN
  3. LEVOXYL [Concomitant]
     Dosage: DOSE: UNKNOWN
  4. THYROID TAB [Concomitant]
     Dosage: DOSE: UNKNOWN
  5. AMINOPHYLLINE [Concomitant]
     Dosage: DOSE: UNKNOWN
  6. BENADRYL [Concomitant]
     Dosage: DOSE: UNKNOWN
  7. FOSAMAX [Concomitant]
     Dosage: DOSE: UNKNOWN
  8. KENALOG [Concomitant]
     Dosage: DOSE: UNKNOWN
  9. FIORINAL [Concomitant]
     Indication: MIGRAINE
     Dosage: DOSE: UNKNOWN
  10. DEMADEX [Concomitant]
     Dosage: DOSE: UNKNOWN
  11. DILTIAZEM EXTENDED-REALEASE CAPSULES [Concomitant]
  12. CALCIUM W/MAGNESIUM [Concomitant]
  13. CALCIUM W/MAGNESIUM [Concomitant]
  14. VITAMIN B-12 [Concomitant]
     Dosage: DOSE: UNKNOWN
  15. MEDROL [Concomitant]
  16. ALBUTEROL [Concomitant]
     Indication: ASTHMA
     Dosage: DOSE: 2 PUFFS
  17. ALUPENT [Concomitant]
     Indication: ASTHMA
     Dosage: DOSE: 2 PUFFS
     Dates: start: 20060411
  18. DUONEB [Concomitant]
     Indication: ASTHMA
     Dosage: DOSE: UNK
     Dates: start: 20060411

REACTIONS (4)
  - ATRIAL FIBRILLATION [None]
  - DIZZINESS [None]
  - DRUG INTERACTION [None]
  - VISUAL DISTURBANCE [None]
